FAERS Safety Report 9913442 (Version 1)
Quarter: 2014Q1

REPORT INFORMATION
  Report Type: Spontaneous
  Country: US (occurrence: None)
  Receive Date: 20140214
  Receipt Date: 20140214
  Transmission Date: 20141002
  Serious: Yes (Other)
  Sender: FDA-Public Use
  Company Number: ADE14-001

PATIENT
  Age: 79 Year
  Sex: Male
  Weight: 91.6 kg

DRUGS (1)
  1. HEPARIN SODIUM [Suspect]
     Indication: ENDARTERECTOMY
     Dates: start: 20140127, end: 20140127

REACTIONS (2)
  - Drug ineffective [None]
  - Product quality issue [None]
